FAERS Safety Report 8721726 (Version 2)
Quarter: 2012Q4

REPORT INFORMATION
  Report Type: 
  Country: US (occurrence: US)
  Receive Date: 20120814
  Receipt Date: 20120903
  Transmission Date: 20130627
  Serious: No
  Sender: FDA-Public Use
  Company Number: US-PFIZER INC-2012193077

PATIENT
  Age: 71 Year
  Sex: Female
  Weight: 54.4 kg

DRUGS (2)
  1. AMLODIPINE BESILATE [Suspect]
     Indication: HYPERTENSION
     Dosage: 10 mg, daily
  2. VISTARIL [Suspect]
     Indication: PRURITUS
     Dosage: 25 mg, 2 to 3 times a day
     Dates: start: 2008

REACTIONS (4)
  - Malaise [Not Recovered/Not Resolved]
  - Asthenia [Unknown]
  - Weight decreased [Unknown]
  - Drug ineffective [Unknown]
